FAERS Safety Report 12440490 (Version 1)
Quarter: 2016Q2

REPORT INFORMATION
  Report Type: Spontaneous
  Country: ZA (occurrence: ZA)
  Receive Date: 20160606
  Receipt Date: 20160606
  Transmission Date: 20160815
  Serious: Yes (Hospitalization)
  Sender: FDA-Public Use
  Company Number: ZA-ABBVIE-16P-143-1645512-00

PATIENT
  Age: 6 Year
  Sex: Female

DRUGS (1)
  1. EPILIZINE [Suspect]
     Active Substance: VALPROATE SODIUM
     Indication: PRODUCT USED FOR UNKNOWN INDICATION
     Route: 042

REACTIONS (3)
  - Drug ineffective [Unknown]
  - Drug level below therapeutic [Unknown]
  - Seizure [Unknown]
